FAERS Safety Report 24032174 (Version 1)
Quarter: 2024Q2

REPORT INFORMATION
  Report Type: Spontaneous
  Country: US (occurrence: US)
  Receive Date: 20240630
  Receipt Date: 20240630
  Transmission Date: 20240715
  Serious: No
  Sender: FDA-Public Use
  Company Number: US-HETERO-HET2024US01777

PATIENT

DRUGS (1)
  1. ATOMOXETINE [Suspect]
     Active Substance: ATOMOXETINE\ATOMOXETINE HYDROCHLORIDE
     Indication: Attention deficit hyperactivity disorder
     Dosage: UNK
     Route: 065

REACTIONS (4)
  - Brain fog [Unknown]
  - Somnolence [Unknown]
  - Fatigue [Unknown]
  - Suspected product quality issue [Unknown]
